FAERS Safety Report 6961346-6 (Version None)
Quarter: 2010Q3

REPORT INFORMATION
  Report Type: 
  Country: None (occurrence: None)
  Receive Date: 20100901
  Receipt Date: 20100827
  Transmission Date: 20110219
  Serious: Yes (Life-Threatening, Hospitalization)
  Sender: FDA-Public Use
  Company Number: A0878744A

PATIENT
  Age: 28 Year
  Sex: Male
  Weight: 81 kg

DRUGS (3)
  1. PARNATE [Suspect]
     Indication: PRODUCT USED FOR UNKNOWN INDICATION
     Dosage: 70MG PER DAY
  2. OLANZAPINE [Suspect]
     Indication: PRODUCT USED FOR UNKNOWN INDICATION
     Dosage: 200MG PER DAY
  3. DULOXETINE HYDROCHLORIDE [Suspect]
     Indication: PRODUCT USED FOR UNKNOWN INDICATION
     Dosage: 840MG PER DAY

REACTIONS (5)
  - COMA [None]
  - CONVULSION [None]
  - HYPERAEMIA [None]
  - LOSS OF CONSCIOUSNESS [None]
  - TACHYCARDIA [None]
